FAERS Safety Report 16365499 (Version 3)
Quarter: 2019Q3

REPORT INFORMATION
  Report Type: Spontaneous
  Country: JP (occurrence: JP)
  Receive Date: 20190529
  Receipt Date: 20190709
  Transmission Date: 20191004
  Serious: Yes (Life-Threatening, Hospitalization)
  Sender: FDA-Public Use
  Company Number: PHJP2019JP005858

PATIENT
  Age: 71 Year
  Sex: Female
  Weight: 61.8 kg

DRUGS (7)
  1. MEKINIST [Suspect]
     Active Substance: TRAMETINIB DIMETHYL SULFOXIDE
     Indication: MALIGNANT MELANOMA STAGE III
     Dosage: 2 MG, QD
     Route: 048
     Dates: start: 20190116, end: 20190510
  2. CANDESARTAN. [Concomitant]
     Active Substance: CANDESARTAN
     Indication: HYPERTENSION
     Dosage: 8 MG, QD
     Route: 048
  3. METGLUCO [Concomitant]
     Active Substance: METFORMIN HYDROCHLORIDE
     Indication: DIABETES MELLITUS
     Dosage: 250 MG, BID
     Route: 048
  4. AMLODIPINE [Concomitant]
     Active Substance: AMLODIPINE BESYLATE
     Indication: HYPERTENSION
     Dosage: 2.5 MG, UNK
     Route: 048
  5. ZETIA [Concomitant]
     Active Substance: EZETIMIBE
     Indication: DYSLIPIDAEMIA
     Dosage: 10 MG, QD
     Route: 048
     Dates: start: 20190129, end: 20190510
  6. GLIMEPIRIDE. [Concomitant]
     Active Substance: GLIMEPIRIDE
     Indication: DIABETES MELLITUS
     Dosage: 3 MG, UNK (2 MG IN THE MORNING, 1 MG IN THE EVENING)
     Route: 048
  7. TAFINLAR [Suspect]
     Active Substance: DABRAFENIB MESYLATE
     Indication: MALIGNANT MELANOMA STAGE III
     Dosage: 150 MG, BID
     Route: 048
     Dates: start: 20190116, end: 20190510

REACTIONS (8)
  - Tremor [Unknown]
  - Nodular rash [Recovered/Resolved]
  - Chills [Unknown]
  - Disorientation [Unknown]
  - Dyslalia [Unknown]
  - Productive cough [Unknown]
  - Pyrexia [Unknown]
  - Interstitial lung disease [Recovering/Resolving]

NARRATIVE: CASE EVENT DATE: 20190122
